FAERS Safety Report 5779798-6 (Version None)
Quarter: 2008Q2

REPORT INFORMATION
  Report Type: 
  Country: None (occurrence: None)
  Receive Date: 20080618
  Receipt Date: 20080527
  Transmission Date: 20081010
  Serious: Yes (Other)
  Sender: FDA-Public Use
  Company Number: 6042464

PATIENT
  Age: 71 Year
  Sex: Male

DRUGS (10)
  1. BISOPROLOL FUMARATE [Suspect]
     Indication: DRUG USE FOR UNKNOWN INDICATION
     Dosage: 1.25 MG (1.25 MG, 1 IN 1 D) ORAL
     Route: 048
  2. DIAZEPAM [Concomitant]
  3. DICLOFENAC SODIUM [Concomitant]
  4. DIHYDROCODEINE COMPOUND [Concomitant]
  5. ISOSORBIDE MONONITRATE [Concomitant]
  6. PREGABALIN (PREGABALIN) [Concomitant]
  7. NITROLINGUAL PUMP SPRAY (GLYCERYL TRINITRATE) [Concomitant]
  8. RAMIPRIL [Concomitant]
  9. FYBOGEL (PLANTAGO OVATA) [Concomitant]
  10. CODEINE SUL TAB [Concomitant]

REACTIONS (3)
  - ANXIETY [None]
  - ATRIAL FIBRILLATION [None]
  - THERAPEUTIC RESPONSE UNEXPECTED WITH DRUG SUBSTITUTION [None]
